FAERS Safety Report 5099597-0 (Version None)
Quarter: 2006Q3

REPORT INFORMATION
  Report Type: 
  Country: None (occurrence: None)
  Receive Date: 20060908
  Receipt Date: 20051116
  Transmission Date: 20061208
  Serious: Yes (Disabling, Other)
  Sender: FDA-Public Use
  Company Number: US-BAYER-200512680BWH

PATIENT
  Age: 66 Year
  Sex: Male
  Weight: 79 kg

DRUGS (1)
  1. LEVITRA [Suspect]
     Indication: ERECTILE DYSFUNCTION
     Dosage: AS USED: 20 MG  UNIT DOSE: 20 MG
     Route: 048
     Dates: start: 20050212, end: 20050401

REACTIONS (5)
  - BLINDNESS UNILATERAL [None]
  - CATARACT [None]
  - MACULAR DEGENERATION [None]
  - PHOTOPHOBIA [None]
  - VISUAL DISTURBANCE [None]
